FAERS Safety Report 6062846-6 (Version None)
Quarter: 2009Q1

REPORT INFORMATION
  Report Type: 
  Country: None (occurrence: None)
  Receive Date: 20090202
  Receipt Date: 20090202
  Transmission Date: 20090719
  Serious: Yes (Other)
  Sender: FDA-Public Use
  Company Number: None

PATIENT
  Sex: Female
  Weight: 66.2252 kg

DRUGS (2)
  1. ACTONEL [Suspect]
     Indication: RESORPTION BONE INCREASED
     Dosage: 1 PILL ONCE A MONTH PO
     Route: 048
     Dates: start: 20090101, end: 20090130
  2. ALENDRONATE SODIUM [Suspect]
     Indication: RESORPTION BONE INCREASED
     Dosage: 1 PILL ONCE A WEEK PO
     Route: 048
     Dates: start: 20070101, end: 20081201

REACTIONS (2)
  - RHINORRHOEA [None]
  - SNEEZING [None]
